FAERS Safety Report 11090636 (Version 3)
Quarter: 2015Q2

REPORT INFORMATION
  Report Type: Spontaneous
  Country: DE (occurrence: DE)
  Receive Date: 20150505
  Receipt Date: 20150609
  Transmission Date: 20150821
  Serious: No
  Sender: FDA-Public Use
  Company Number: DE-UCBSA-2015013243

PATIENT
  Age: 5 Year

DRUGS (2)
  1. KEPPRA [Suspect]
     Active Substance: LEVETIRACETAM
     Indication: SEIZURE
     Dosage: 500 MG SOLVED IN 15-20 ML SODIUM CHLORIDE, VIA PORT/PERFUSOR
     Route: 042
  2. KEPPRA [Suspect]
     Active Substance: LEVETIRACETAM
     Indication: OFF LABEL USE

REACTIONS (2)
  - No adverse event [Unknown]
  - Off label use [Unknown]
